FAERS Safety Report 14134187 (Version 1)
Quarter: 2017Q4

REPORT INFORMATION
  Report Type: Report from Study
  Country: FR (occurrence: FR)
  Receive Date: 20171027
  Receipt Date: 20171027
  Transmission Date: 20180321
  Serious: Yes (Hospitalization)
  Sender: FDA-Public Use
  Company Number: PHHO2017FR014631

PATIENT
  Age: 49 Year
  Sex: Male
  Weight: 99 kg

DRUGS (6)
  1. SIMULECT [Concomitant]
     Active Substance: BASILIXIMAB
     Indication: RENAL TRANSPLANT
     Dosage: 20 MG, UNK
     Route: 065
     Dates: start: 20170416, end: 20170416
  2. CELLCEPT [Concomitant]
     Active Substance: MYCOPHENOLATE MOFETIL\MYCOPHENOLATE MOFETIL HYDROCHLORIDE
     Indication: RENAL TRANSPLANT
     Dosage: 10 MG, UNK
     Route: 065
     Dates: start: 20170422
  3. SIMULECT [Concomitant]
     Active Substance: BASILIXIMAB
     Dosage: 20 MG, UNK
     Route: 065
     Dates: start: 20170420, end: 20170420
  4. PROGRAF [Concomitant]
     Active Substance: TACROLIMUS\TACROLIMUS ANHYDROUS
     Indication: RENAL TRANSPLANT
     Dosage: 12 MG, UNK
     Route: 065
     Dates: start: 20170416
  5. PROGRAF [Concomitant]
     Active Substance: TACROLIMUS\TACROLIMUS ANHYDROUS
     Dosage: 10 MG, UNK
     Route: 065
     Dates: start: 20170429
  6. EVEROLIMUS. [Suspect]
     Active Substance: EVEROLIMUS
     Indication: RENAL TRANSPLANT
     Dosage: UNK
     Route: 048
     Dates: start: 20170416

REACTIONS (2)
  - Retroperitoneal haematoma [Unknown]
  - Pulmonary embolism [Unknown]

NARRATIVE: CASE EVENT DATE: 20170416
